FAERS Safety Report 5920208-3 (Version None)
Quarter: 2008Q4

REPORT INFORMATION
  Report Type: 
  Country: None (occurrence: None)
  Receive Date: 20081016
  Receipt Date: 20080211
  Transmission Date: 20090506
  Serious: No
  Sender: FDA-Public Use
  Company Number: A0708687A

PATIENT
  Age: 46 Year
  Sex: Female

DRUGS (2)
  1. CEFTIN [Suspect]
     Dosage: 500MG TWICE PER DAY
     Route: 048
     Dates: start: 20080206
  2. HYDROCHLOROTHIAZIDE [Concomitant]

REACTIONS (1)
  - ERUCTATION [None]
